FAERS Safety Report 6641952-9 (Version None)
Quarter: 2010Q1

REPORT INFORMATION
  Report Type: 
  Country: None (occurrence: None)
  Receive Date: 20100319
  Receipt Date: 20100310
  Transmission Date: 20100710
  Serious: Yes (Other)
  Sender: FDA-Public Use
  Company Number: US-ASTRAZENECA-2010SE10379

PATIENT
  Age: 70 Year
  Sex: Male
  Weight: 96.1 kg

DRUGS (14)
  1. CRESTOR [Suspect]
     Indication: BLOOD CHOLESTEROL INCREASED
     Route: 048
  2. CRESTOR [Suspect]
     Route: 048
  3. CADUET [Suspect]
     Indication: BLOOD CHOLESTEROL INCREASED
     Route: 048
     Dates: end: 20090101
  4. LIPITOR [Suspect]
     Indication: BLOOD CHOLESTEROL INCREASED
     Route: 048
     Dates: start: 20020101
  5. VIAGRA [Suspect]
     Indication: ERECTILE DYSFUNCTION
     Route: 048
  6. VIAGRA [Suspect]
     Indication: LIBIDO DECREASED
     Route: 048
  7. LISINOPRIL [Concomitant]
  8. HYDROCHLOROTHIAZIDE [Concomitant]
  9. METOPROLOL SUCCINATE [Concomitant]
  10. CINNAMON [Concomitant]
  11. CO-Q-10 (UBIDECARENONE) [Concomitant]
  12. ACETYLSALICYLIC ACID SRT [Concomitant]
  13. VITAMIN B COMPLEX CAP [Concomitant]
  14. MULTI-VITAMINS [Concomitant]

REACTIONS (7)
  - BLOOD CHOLESTEROL INCREASED [None]
  - DRUG INEFFECTIVE [None]
  - DYSPAREUNIA [None]
  - FATIGUE [None]
  - MUSCULAR WEAKNESS [None]
  - MYALGIA [None]
  - PAIN [None]
